FAERS Safety Report 23318159 (Version 2)
Quarter: 2023Q4

REPORT INFORMATION
  Report Type: Report from Study
  Country: IT (occurrence: IT)
  Receive Date: 20231220
  Receipt Date: 20231222
  Transmission Date: 20240110
  Serious: Yes (Other)
  Sender: FDA-Public Use
  Company Number: IT-JNJFOC-20231232708

PATIENT

DRUGS (2)
  1. BOSENTAN [Suspect]
     Active Substance: BOSENTAN
     Indication: Systemic scleroderma
     Dosage: STARTED AT 62.5 MG TWICE DAILY FOR 4 WEEKS
     Route: 048
  2. BOSENTAN [Suspect]
     Active Substance: BOSENTAN
     Indication: Skin ulcer
     Dosage: INCREASED TO 125 MG TWICE DAILY FOR A TOTAL OF 16 WEEKS
     Route: 048

REACTIONS (2)
  - Renal impairment [Unknown]
  - Blood pressure decreased [Unknown]
